FAERS Safety Report 10456271 (Version 3)
Quarter: 2014Q4

REPORT INFORMATION
  Report Type: Spontaneous
  Country: US (occurrence: US)
  Receive Date: 20140916
  Receipt Date: 20141013
  Transmission Date: 20150528
  Serious: Yes (Other)
  Sender: FDA-Public Use
  Company Number: US-JNJFOC-20140617701

PATIENT
  Sex: Female
  Weight: 102.06 kg

DRUGS (2)
  1. RISPERDAL CONSTA [Suspect]
     Active Substance: RISPERIDONE
     Indication: PERSONALITY DISORDER
     Route: 030
     Dates: start: 200907
  2. RISPERDAL CONSTA [Suspect]
     Active Substance: RISPERIDONE
     Indication: PERSONALITY DISORDER
     Route: 030
     Dates: end: 201008

REACTIONS (11)
  - Hypoaesthesia [Not Recovered/Not Resolved]
  - Fluid retention [Recovering/Resolving]
  - Thought blocking [Not Recovered/Not Resolved]
  - Accident [Unknown]
  - Syncope [Not Recovered/Not Resolved]
  - Head injury [Unknown]
  - Burning sensation [Unknown]
  - Weight increased [Recovering/Resolving]
  - Fatigue [Not Recovered/Not Resolved]
  - Mass [Not Recovered/Not Resolved]
  - Breast mass [Not Recovered/Not Resolved]
